FAERS Safety Report 4596934-8 (Version None)
Quarter: 2005Q1

REPORT INFORMATION
  Report Type: 
  Country: None (occurrence: None)
  Receive Date: 20050228
  Receipt Date: 20050212
  Transmission Date: 20050727
  Serious: Yes (Other)
  Sender: FDA-Public Use
  Company Number: 2004118491

PATIENT
  Age: 74 Year
  Sex: Male
  Weight: 83.9154 kg

DRUGS (8)
  1. ZOLOFT [Suspect]
     Indication: DEPRESSION
     Dosage: (100 MG), ORAL
     Route: 048
     Dates: start: 19890101
  2. TRAZADONE HYDROCHLORIDE (TRAZADONE HYDROCHLORIDE) [Concomitant]
  3. DONEPEZIL HYDROCHOORIDE (DONEPEZIL HYDROCHLORIDE) [Concomitant]
  4. FLUTICASONE PROPIONATE [Concomitant]
  5. POTASSIUM CHLORIDE [Concomitant]
  6. GUAIFENESIN (GUAIFENESIN) [Concomitant]
  7. ALPRAZOLAM [Concomitant]
  8. LANSOPRAZOLE [Concomitant]

REACTIONS (7)
  - AMNESIA [None]
  - CEREBROVASCULAR ACCIDENT [None]
  - DEMENTIA ALZHEIMER'S TYPE [None]
  - GASTROOESOPHAGEAL REFLUX DISEASE [None]
  - MEDICATION ERROR [None]
  - SLEEP APNOEA SYNDROME [None]
  - SOMNOLENCE [None]
